FAERS Safety Report 9618853 (Version 1)
Quarter: 2013Q4

REPORT INFORMATION
  Report Type: Spontaneous
  Country: US (occurrence: US)
  Receive Date: 20131014
  Receipt Date: 20131014
  Transmission Date: 20140711
  Serious: No
  Sender: FDA-Public Use
  Company Number: US-BAYER-2013-123348

PATIENT
  Age: 72 Year
  Sex: Male

DRUGS (7)
  1. STAXYN (FDT/ODT) [Suspect]
     Indication: ERECTILE DYSFUNCTION
     Dosage: 10 MG, UNK
     Route: 048
     Dates: start: 20131009
  2. METFORMIN [Concomitant]
     Dosage: DAILY
  3. METOPROLOL [Concomitant]
     Dosage: 25 MG, QD
  4. PRAVASTATIN [Concomitant]
     Dosage: 40 MG, QD
  5. LISINOPRIL [Concomitant]
     Dosage: 5 MG, QD
  6. ASPIRIN [Concomitant]
     Dosage: 81 MG, QD
  7. MELOXICAM [Concomitant]
     Indication: PAIN
     Dosage: 15 MG, DAILY IF NEEDED

REACTIONS (1)
  - Drug ineffective [None]
